FAERS Safety Report 18417189 (Version 4)
Quarter: 2022Q4

REPORT INFORMATION
  Report Type: Spontaneous
  Country: ES (occurrence: ES)
  Receive Date: 20201022
  Receipt Date: 20221107
  Transmission Date: 20230113
  Serious: Yes (Other)
  Sender: FDA-Public Use
  Company Number: ES-EMA-DD-20200817-KUMARSINGH_A-153141

PATIENT
  Age: 46 Year
  Sex: Male

DRUGS (21)
  1. BUPRENORPHINE [Interacting]
     Active Substance: BUPRENORPHINE
     Indication: Product used for unknown indication
     Dosage: UNK
     Route: 065
  2. FENOFIBRATE [Interacting]
     Active Substance: FENOFIBRATE
     Indication: Product used for unknown indication
     Dosage: 160 MG, DAILY
     Route: 065
  3. FENOFIBRATE [Interacting]
     Active Substance: FENOFIBRATE
     Dosage: 160 MILLIGRAM, DAILY
     Route: 065
     Dates: end: 2019
  4. PRAVASTATIN [Interacting]
     Active Substance: PRAVASTATIN
     Indication: Product used for unknown indication
     Dosage: 40 MG, DAILY
     Route: 065
  5. PRAVASTATIN [Interacting]
     Active Substance: PRAVASTATIN
     Dosage: 40 MILLIGRAM, DAILY
     Route: 065
     Dates: end: 2019
  6. FENTANYL [Interacting]
     Active Substance: FENTANYL
     Indication: Product used for unknown indication
     Dosage: UNK
     Route: 065
  7. BUPRENORPHINE [Interacting]
     Active Substance: BUPRENORPHINE
     Indication: Product used for unknown indication
     Dosage: UNK
     Route: 065
  8. EZETIMIBE [Interacting]
     Active Substance: EZETIMIBE
     Indication: Hypercholesterolaemia
     Dosage: 10 MILLIGRAM, DAILY, 0/0/1/0
     Route: 065
  9. PREGABALIN [Concomitant]
     Active Substance: PREGABALIN
     Indication: Chest pain
     Dosage: 450 MILLIGRAM, DAILY, 1/1/1/0
     Route: 065
  10. ENALAPRIL HIDROCLOROTIAZIDA [Concomitant]
     Indication: Hypertension
     Dosage: 160 MILLIGRAM, DAILY
     Route: 065
  11. ENALAPRIL HIDROCLOROTIAZIDA [Concomitant]
     Dosage: 1 DOSAGE FORM, DAILY, 1/0/0/0
     Route: 065
  12. ACETAMINOPHEN\TRAMADOL [Concomitant]
     Active Substance: ACETAMINOPHEN\TRAMADOL
     Indication: Chest pain
     Dosage: 3 DOSAGE FORM, DAILY, 1/1/1/0
     Route: 065
  13. ETORICOXIB [Concomitant]
     Active Substance: ETORICOXIB
     Indication: Chest pain
     Dosage: 90 MILLIGRAM, DAILY, ~1/0/0/0
     Route: 065
  14. BUPRENORPHINE [Concomitant]
     Active Substance: BUPRENORPHINE
     Indication: Chest pain
     Dosage: 52.5 MCG, Q72H, 1/72H
     Route: 065
  15. METFORMIN [Concomitant]
     Active Substance: METFORMIN HYDROCHLORIDE
     Indication: Type 2 diabetes mellitus
     Dosage: 1700 MILLIGRAM, DAILY
     Route: 065
  16. AMITRIPTYLINE HYDROCHLORIDE [Concomitant]
     Active Substance: AMITRIPTYLINE HYDROCHLORIDE
     Indication: Depression
     Dosage: 25 MILLIGRAM, DAILY, ~0/0/0/1
     Route: 065
  17. AMITRIPTYLINE HYDROCHLORIDE [Concomitant]
     Active Substance: AMITRIPTYLINE HYDROCHLORIDE
     Dosage: 40 MILLIGRAM, DAILY
     Route: 065
  18. ACETAMINOPHEN [Concomitant]
     Active Substance: ACETAMINOPHEN
     Indication: Chest pain
     Dosage: 1 GRAM, DAILY, 1/0/0/0
     Route: 065
  19. FENTANYL [Concomitant]
     Active Substance: FENTANYL
     Indication: Chest pain
     Dosage: 200 MICROGRAM, DAILY, 0/0/0/1
     Route: 065
  20. LORAZEPAM [Concomitant]
     Active Substance: LORAZEPAM
     Indication: Anxiety
     Dosage: 1 MILLIGRAM, DAILY
     Route: 065
  21. METAMIZOL [Concomitant]
     Active Substance: METAMIZOLE SODIUM
     Indication: Chest pain
     Dosage: 575 MILLIGRAM, DAILY, 0/1/0/0
     Route: 065

REACTIONS (4)
  - Gamma-glutamyltransferase increased [Recovering/Resolving]
  - Drug interaction [Recovered/Resolved]
  - Anxiety [Unknown]
  - Hepatic enzyme increased [Unknown]
